FAERS Safety Report 9894416 (Version 1)
Quarter: 2014Q1

REPORT INFORMATION
  Report Type: Spontaneous
  Country: DE (occurrence: DE)
  Receive Date: 20140213
  Receipt Date: 20140213
  Transmission Date: 20141002
  Serious: Yes (Hospitalization)
  Sender: FDA-Public Use
  Company Number: PHHY2014DE016658

PATIENT
  Age: 35 Year
  Sex: Male

DRUGS (2)
  1. 5-FLUOROURACIL [Suspect]
     Indication: COLON CANCER
     Dosage: 950 MG, UNK
     Route: 040
  2. FOLINIC ACID [Concomitant]
     Indication: COLON CANCER
     Dosage: 45 MG, UNK
     Route: 040

REACTIONS (18)
  - Multi-organ failure [Recovered/Resolved]
  - Cerebellar ischaemia [Recovered/Resolved]
  - Paraesthesia oral [Recovered/Resolved]
  - Unresponsive to stimuli [Recovered/Resolved]
  - Central venous pressure abnormal [Recovered/Resolved]
  - Dyspnoea [Recovered/Resolved]
  - Central nervous system lesion [Recovered/Resolved]
  - Aphasia [Recovered/Resolved]
  - Hepatic encephalopathy [Recovered/Resolved]
  - Somnolence [Recovered/Resolved]
  - Myoclonus [Recovered/Resolved]
  - Convulsion [Recovered/Resolved]
  - Renal impairment [Recovered/Resolved]
  - Cardiogenic shock [Recovered/Resolved]
  - Sinus tachycardia [Recovered/Resolved]
  - Left ventricular failure [Recovered/Resolved]
  - Cardiac failure [Recovered/Resolved]
  - Vomiting [Recovered/Resolved]
